FAERS Safety Report 5350974-X (Version None)
Quarter: 2007Q2

REPORT INFORMATION
  Report Type: 
  Country: None (occurrence: None)
  Receive Date: 20070608
  Receipt Date: 20070531
  Transmission Date: 20071010
  Serious: Yes (Hospitalization, Other)
  Sender: FDA-Public Use
  Company Number: CA-ELI_LILLY_AND_COMPANY-CA200701003981

PATIENT
  Age: 83 Year
  Sex: Female
  Weight: 53.7 kg

DRUGS (14)
  1. FORTEO [Suspect]
     Indication: OSTEOPOROSIS
     Dosage: 20 UG, DAILY (1/D)
     Route: 058
     Dates: start: 20060302
  2. AVALIDE [Concomitant]
     Dosage: 300 MG, UNK
  3. PHENOBARBITAL TAB [Concomitant]
     Dosage: 200 MG, UNK
  4. AGGRENOX [Concomitant]
     Dosage: 50 MG, UNK
  5. FOLIC ACID [Concomitant]
     Dosage: 5 MG, UNK
  6. OMEPRAZOLE [Concomitant]
     Dosage: 40 MG, UNK
  7. DIMENHYDRINATE [Concomitant]
     Dosage: UNK, AS NEEDED
  8. TYLENOL W/ CODEINE NO. 3 [Concomitant]
     Dosage: UNK, AS NEEDED
  9. OSTOFORTE [Concomitant]
     Dosage: 5000 IU, DAILY (1/D)
  10. ACETYLSALICYLIC ACID SRT [Concomitant]
  11. HYDROCHLOROTHIAZIDE [Concomitant]
  12. LANSOPRAZOLE [Concomitant]
  13. PHENYTOIN [Concomitant]
  14. VITAMIN D [Concomitant]

REACTIONS (7)
  - BENIGN PANCREATIC NEOPLASM [None]
  - DIARRHOEA [None]
  - LUNG SQUAMOUS CELL CARCINOMA STAGE II [None]
  - MALIGNANT MEDIASTINAL NEOPLASM [None]
  - NAUSEA [None]
  - RESORPTION BONE INCREASED [None]
  - VOMITING [None]
